FAERS Safety Report 7799666-8 (Version None)
Quarter: 2011Q4

REPORT INFORMATION
  Report Type: 
  Country: None (occurrence: None)
  Receive Date: 20111006
  Receipt Date: 20110926
  Transmission Date: 20120403
  Serious: Yes (Hospitalization, Other)
  Sender: FDA-Public Use
  Company Number: US-BAYER-2010-007149

PATIENT
  Age: 28 Year
  Sex: Female
  Weight: 75.737 kg

DRUGS (5)
  1. YAZ [Suspect]
     Indication: ACNE
     Dosage: UNK
     Dates: start: 20080523, end: 20081001
  2. VITAMIN B-12 [Concomitant]
     Indication: HYPOVITAMINOSIS
     Dosage: 1000 MG, Q2MON
     Dates: start: 20080501
  3. MULTIHANCE [Concomitant]
     Indication: NUCLEAR MAGNETIC RESONANCE IMAGING BRAIN
     Dosage: 15 UNK, UNK
     Route: 042
     Dates: start: 20081011
  4. ALBUTEROL [Concomitant]
     Dosage: UNK
     Dates: start: 20000101, end: 20090101
  5. YAZ [Suspect]
     Indication: CONTRACEPTION

REACTIONS (6)
  - PAIN [None]
  - INJURY [None]
  - ANXIETY [None]
  - THROMBOPHLEBITIS SUPERFICIAL [None]
  - EMOTIONAL DISTRESS [None]
  - GENERAL PHYSICAL HEALTH DETERIORATION [None]
